FAERS Safety Report 21337584 (Version 1)
Quarter: 2022Q3

REPORT INFORMATION
  Report Type: Spontaneous
  Country: US (occurrence: None)
  Receive Date: 20220915
  Receipt Date: 20220915
  Transmission Date: 20221026
  Serious: No
  Sender: FDA-Public Use
  Company Number: None

PATIENT
  Age: 33 Year
  Sex: Female
  Weight: 90 kg

DRUGS (3)
  1. QBREXZA [Suspect]
     Active Substance: GLYCOPYRRONIUM TOSYLATE
     Indication: Hyperhidrosis
     Dosage: OTHER QUANTITY : 1 CLOTH;?FREQUENCY : AS NEEDED;?
     Route: 061
     Dates: start: 20220909, end: 20220909
  2. VITAMIN D [Concomitant]
     Active Substance: VITAMIN D NOS
  3. FIBER [Concomitant]
     Active Substance: PSYLLIUM HUSK

REACTIONS (1)
  - Mydriasis [None]

NARRATIVE: CASE EVENT DATE: 20220910
